FAERS Safety Report 4315760-8 (Version None)
Quarter: 2004Q1

REPORT INFORMATION
  Report Type: 
  Country: None (occurrence: None)
  Receive Date: 20040310
  Receipt Date: 20040225
  Transmission Date: 20041129
  Serious: Yes (Other)
  Sender: FDA-Public Use
  Company Number: 2004013296

PATIENT
  Age: 2 Year
  Sex: Male
  Weight: 15.8759 kg

DRUGS (2)
  1. CHILDREN'S PEDICARE NIGHTREST COUGH AND COLD ( [Suspect]
     Indication: ACCIDENTAL EXPOSURE
     Dosage: 3/4 OF BOTTLE ONCE, ORAL
     Route: 048
     Dates: start: 20040225, end: 20040225
  2. ACETAMINOPHEN [Concomitant]

REACTIONS (5)
  - ABASIA [None]
  - ACCIDENTAL EXPOSURE [None]
  - DIZZINESS [None]
  - LETHARGY [None]
  - SOMNOLENCE [None]
